FAERS Safety Report 19157725 (Version 1)
Quarter: 2021Q2

REPORT INFORMATION
  Report Type: Other
  Country: CH (occurrence: CH)
  Receive Date: 20210420
  Receipt Date: 20210420
  Transmission Date: 20210717
  Serious: Yes (Hospitalization, Other)
  Sender: FDA-Public Use
  Company Number: CH-ASTELLAS-2021US014104

PATIENT
  Age: 76 Year
  Sex: Male

DRUGS (15)
  1. VENCLYXTO [Suspect]
     Active Substance: VENETOCLAX
     Route: 048
     Dates: start: 20210129, end: 2021
  2. VENCLYXTO [Suspect]
     Active Substance: VENETOCLAX
     Dosage: 1 DF, ONCE DAILY (34 (UNIT UNKNOWN) (1 IN 1 D))
     Route: 048
     Dates: start: 2021
  3. CRESEMBA [Suspect]
     Active Substance: ISAVUCONAZONIUM SULFATE
     Indication: PRODUCT USED FOR UNKNOWN INDICATION
     Dosage: UNK, UNKNOWN FREQ.
     Route: 042
     Dates: start: 20210107, end: 20210224
  4. AZACITIDINE. [Suspect]
     Active Substance: AZACITIDINE
     Dosage: UNK, UNKNOWN FREQ.
     Route: 065
     Dates: start: 20210301
  5. AZACITIDINE. [Suspect]
     Active Substance: AZACITIDINE
     Dosage: UNK, UNKNOWN FREQ.
     Route: 065
     Dates: start: 20201214
  6. VENCLYXTO [Suspect]
     Active Substance: VENETOCLAX
     Dosage: 1 DF, ONCE DAILY(1 IN 1 D, THIRD CYCLE)
     Route: 048
     Dates: start: 20201214, end: 20201222
  7. VENCLYXTO [Suspect]
     Active Substance: VENETOCLAX
     Dosage: UNK, UNKNOWN FREQ.
     Route: 065
     Dates: start: 20210210, end: 2021
  8. VENCLYXTO [Suspect]
     Active Substance: VENETOCLAX
     Indication: ACUTE MYELOID LEUKAEMIA
     Dosage: 1 DF, ONCE DAILY (1 IN 1 D)
     Route: 048
     Dates: start: 20201029, end: 2020
  9. ASPIRIN CARDIO [Concomitant]
     Active Substance: ASPIRIN
     Indication: PRODUCT USED FOR UNKNOWN INDICATION
     Dosage: UNK UNK, ONCE DAILY (MORNING)
     Route: 065
  10. ESOMEP [ESOMEPRAZOLE] [Concomitant]
     Active Substance: ESOMEPRAZOLE
     Indication: PRODUCT USED FOR UNKNOWN INDICATION
     Dosage: UNK UNK, UNKNOWN FREQ. (MORNING)
     Route: 065
  11. JANUMET [Concomitant]
     Active Substance: METFORMIN HYDROCHLORIDE\SITAGLIPTIN PHOSPHATE
     Indication: PRODUCT USED FOR UNKNOWN INDICATION
     Dosage: UNK UNK, UNKNOWN FREQ.
     Route: 065
     Dates: start: 20200129
  12. RAMIPRIL. [Concomitant]
     Active Substance: RAMIPRIL
     Indication: PRODUCT USED FOR UNKNOWN INDICATION
     Dosage: UNK UNK, UNKNOWN FREQ.
     Route: 065
  13. AZACITIDINE. [Suspect]
     Active Substance: AZACITIDINE
     Indication: PRODUCT USED FOR UNKNOWN INDICATION
     Dosage: UNK UNK, UNKNOWN FREQ.
     Route: 065
     Dates: start: 20201116, end: 2020
  14. VENCLYXTO [Suspect]
     Active Substance: VENETOCLAX
     Dosage: 1 DF, ONCE DAILY(1 IN 1 D, SECOND CYCLE)
     Route: 048
     Dates: start: 20201116, end: 2020
  15. METFORMIN [Concomitant]
     Active Substance: METFORMIN HYDROCHLORIDE
     Indication: PRODUCT USED FOR UNKNOWN INDICATION
     Dosage: 500 MG, ONCE DAILY (EVENING)
     Route: 065
     Dates: start: 20210129

REACTIONS (7)
  - Lung disorder [Unknown]
  - Lung infiltration [Unknown]
  - Venous injury [Unknown]
  - Osteomyelitis [Unknown]
  - Pancytopenia [Unknown]
  - Pneumonia fungal [Unknown]
  - Drug interaction [Recovered/Resolved]

NARRATIVE: CASE EVENT DATE: 20210129
